FAERS Safety Report 25661958 (Version 1)
Quarter: 2025Q3

REPORT INFORMATION
  Report Type: Spontaneous
  Country: IN (occurrence: IN)
  Receive Date: 20250809
  Receipt Date: 20250809
  Transmission Date: 20251021
  Serious: Yes (Hospitalization, Other)
  Sender: MACLEODS
  Company Number: IN-MACLEODS PHARMA-MAC2025054553

PATIENT

DRUGS (2)
  1. TRIAMCINOLONE [Suspect]
     Active Substance: TRIAMCINOLONE
     Indication: Lichen planus
     Route: 030
  2. PENICILLIN [Concomitant]
     Active Substance: PENICILLIN
     Indication: Embolia cutis medicamentosa
     Route: 048

REACTIONS (5)
  - Embolia cutis medicamentosa [Recovered/Resolved]
  - Ischaemia [Recovered/Resolved]
  - Cellulitis [Recovered/Resolved]
  - Staphylococcal infection [Recovered/Resolved]
  - Excessive granulation tissue [Unknown]
